FAERS Safety Report 21977221 (Version 3)
Quarter: 2023Q1

REPORT INFORMATION
  Report Type: Spontaneous
  Country: ES (occurrence: ES)
  Receive Date: 20230210
  Receipt Date: 20230330
  Transmission Date: 20230417
  Serious: Yes (Hospitalization, Other)
  Sender: FDA-Public Use
  Company Number: ES-BRISTOL-MYERS SQUIBB COMPANY-2023-017108

PATIENT
  Age: 75 Year
  Sex: Female
  Weight: 60 kg

DRUGS (1)
  1. ELIQUIS [Suspect]
     Active Substance: APIXABAN
     Indication: Cerebrovascular accident prophylaxis
     Route: 048
     Dates: start: 202209, end: 20230201

REACTIONS (4)
  - Immune thrombocytopenia [Not Recovered/Not Resolved]
  - Nervousness [Unknown]
  - Pneumonia streptococcal [Recovered/Resolved]
  - Streptococcal urinary tract infection [Unknown]

NARRATIVE: CASE EVENT DATE: 20230101
